FAERS Safety Report 20431458 (Version 1)
Quarter: 2022Q1

REPORT INFORMATION
  Report Type: Other
  Country: CA (occurrence: None)
  Receive Date: 20220204
  Receipt Date: 20220204
  Transmission Date: 20220424
  Serious: Yes (Other)
  Sender: FDA-Public Use
  Company Number: CA-ROCHE-3009777

PATIENT
  Sex: Female

DRUGS (4)
  1. OCREVUS [Suspect]
     Active Substance: OCRELIZUMAB
     Indication: Relapsing-remitting multiple sclerosis
     Dosage: 300 MG AT DAY 0 AND 14, THEN 600 MG EVERY 6 MONTH
     Route: 042
     Dates: start: 20210305
  2. COVID-19 VACCINE [Concomitant]
     Dosage: FIRST DOSE
     Dates: start: 20210717, end: 20210717
  3. COVID-19 VACCINE [Concomitant]
     Dosage: SECOND DOSE
     Dates: start: 20210814, end: 20210814
  4. MODERNA COVID-19 VACCINE [Concomitant]
     Active Substance: ELASOMERAN
     Dosage: THIRD DOSE
     Dates: start: 20220115, end: 20220115

REACTIONS (2)
  - Behcet^s syndrome [Recovered/Resolved]
  - Eye disorder [Unknown]
